FAERS Safety Report 12156057 (Version 2)
Quarter: 2016Q1

REPORT INFORMATION
  Report Type: Report from Study
  Country: GR (occurrence: GR)
  Receive Date: 20160307
  Receipt Date: 20160308
  Transmission Date: 20160526
  Serious: Yes (Hospitalization, Other)
  Sender: FDA-Public Use
  Company Number: PHHY2016GR028287

PATIENT
  Age: 28 Year
  Sex: Female

DRUGS (3)
  1. ETANERCEPT [Suspect]
     Active Substance: ETANERCEPT
     Indication: PRODUCT USED FOR UNKNOWN INDICATION
     Dosage: UNK UNK, QW
     Route: 065
     Dates: start: 201509
  2. CICLOSPORIN [Suspect]
     Active Substance: CYCLOSPORINE
     Indication: PSORIATIC ARTHROPATHY
     Dosage: UNK
     Route: 065
  3. CERTOLIZUMAB PEGOL [Suspect]
     Active Substance: CERTOLIZUMAB PEGOL
     Indication: PRODUCT USED FOR UNKNOWN INDICATION
     Route: 065

REACTIONS (10)
  - Diplopia [Unknown]
  - Vein disorder [Unknown]
  - Polyarthritis [Unknown]
  - Psoriatic arthropathy [Unknown]
  - Product use issue [Unknown]
  - Benign intracranial hypertension [Unknown]
  - Headache [Unknown]
  - Tinnitus [Unknown]
  - Drug ineffective for unapproved indication [Unknown]
  - Back pain [Unknown]

NARRATIVE: CASE EVENT DATE: 201504
